FAERS Safety Report 5515950-2 (Version None)
Quarter: 2007Q4

REPORT INFORMATION
  Report Type: 
  Country: None (occurrence: None)
  Receive Date: 20071114
  Receipt Date: 20071102
  Transmission Date: 20080405
  Serious: Yes (Other)
  Sender: FDA-Public Use
  Company Number: CH-ROCHE-529639

PATIENT
  Age: 31 Year
  Sex: Male

DRUGS (1)
  1. ROACCUTAN [Suspect]
     Indication: ACNE
     Dosage: FREQUENCY REPORTED AS CYCLIC.
     Route: 048
     Dates: start: 19920101, end: 20000101

REACTIONS (7)
  - ALOPECIA [None]
  - DEPRESSED MOOD [None]
  - DERMAL CYST [None]
  - HAEMANGIOMA [None]
  - MUSCULOSKELETAL PAIN [None]
  - SEBORRHOEIC DERMATITIS [None]
  - SUICIDAL IDEATION [None]
